FAERS Safety Report 7457299-7 (Version None)
Quarter: 2011Q2

REPORT INFORMATION
  Report Type: 
  Country: None (occurrence: None)
  Receive Date: 20110504
  Receipt Date: 20100529
  Transmission Date: 20111010
  Serious: No
  Sender: FDA-Public Use
  Company Number: US-SANOFI-AVENTIS-2010SA035585

PATIENT
  Age: 44 Year
  Sex: Male

DRUGS (3)
  1. APIDRA [Suspect]
     Indication: DIABETES MELLITUS
     Dosage: DOSE:13 UNIT(S)
     Route: 058
     Dates: start: 20100529
  2. LANTUS [Suspect]
     Dosage: DOSE:34 UNIT(S)
     Route: 058
  3. LANTUS [Suspect]

REACTIONS (5)
  - DYSPNOEA [None]
  - BLOOD GLUCOSE DECREASED [None]
  - NERVOUSNESS [None]
  - FEELING ABNORMAL [None]
  - BLOOD GLUCOSE INCREASED [None]
